FAERS Safety Report 10363952 (Version 1)
Quarter: 2014Q3

REPORT INFORMATION
  Report Type: Spontaneous
  Country: IN (occurrence: None)
  Receive Date: 20140801
  Receipt Date: 20140801
  Transmission Date: 20150326
  Serious: Yes (Hospitalization, Congenital Anomaly, Other)
  Sender: FDA-Public Use
  Company Number: IMP_07749_2014

PATIENT
  Age: 1 Day
  Sex: Female

DRUGS (1)
  1. VALPROIC ACID (VALPROIC ACID) [Suspect]
     Active Substance: VALPROIC ACID
     Indication: MATERNAL EXPOSURE DURING PREGNANCY
     Dosage: [PER DAY] TRANSPLACENTAL]  UNTIL NOT CONTINUING )

REACTIONS (2)
  - Foetal anticonvulsant syndrome [None]
  - Atrial septal defect [None]
